FAERS Safety Report 4942622-5 (Version None)
Quarter: 2006Q1

REPORT INFORMATION
  Report Type: 
  Country: None (occurrence: None)
  Receive Date: 20060310
  Receipt Date: 20060228
  Transmission Date: 20060701
  Serious: Yes (Death, Hospitalization)
  Sender: FDA-Public Use
  Company Number: 2005BI022057

PATIENT
  Sex: Female

DRUGS (6)
  1. AVONEX [Suspect]
     Indication: MULTIPLE SCLEROSIS
     Dosage: 30 UG;QW;IM
     Route: 030
     Dates: start: 20010718, end: 20051120
  2. PREDNISONE [Concomitant]
  3. SYNTHROID [Concomitant]
  4. LEVAQUIN [Concomitant]
  5. TRAMADOL HCL [Concomitant]
  6. PROTONIX [Concomitant]

REACTIONS (6)
  - BLOOD GLUCOSE DECREASED [None]
  - DIABETES MELLITUS NON-INSULIN-DEPENDENT [None]
  - EPISTAXIS [None]
  - MYELODYSPLASTIC SYNDROME [None]
  - RENAL FAILURE CHRONIC [None]
  - THROMBOCYTOPENIA [None]
